FAERS Safety Report 9538523 (Version 1)
Quarter: 2013Q2

REPORT INFORMATION
  Report Type: Spontaneous
  Country: US (occurrence: None)
  Receive Date: 20130510
  Receipt Date: 20130510
  Transmission Date: 20140414
  Serious: No
  Sender: FDA-Public Use
  Company Number: US-010882

PATIENT
  Age: 54 Year
  Sex: Female
  Weight: 83.92 kg

DRUGS (5)
  1. PICO-SALAX [Suspect]
     Indication: COLONOSCOPY
     Dosage: ONE PACKET AT 9AM; SECOND PACKET AT 3PM ORAL
     Dates: start: 20130203, end: 20130203
  2. FOLIC ACID [Concomitant]
  3. TUMS [Concomitant]
  4. DAILY VITAMINS [Concomitant]
  5. ASACOL [Concomitant]

REACTIONS (1)
  - Drug ineffective [None]
